FAERS Safety Report 11803883 (Version 3)
Quarter: 2015Q4

REPORT INFORMATION
  Report Type: Report from Study
  Country: CZ (occurrence: CZ)
  Receive Date: 20151204
  Receipt Date: 20151230
  Transmission Date: 20160305
  Serious: Yes (Hospitalization)
  Sender: FDA-Public Use
  Company Number: CZ-JNJFOC-20150700477

PATIENT
  Age: 50 Year
  Sex: Female
  Weight: 94 kg

DRUGS (20)
  1. HELICID [Concomitant]
  2. ZYRTEC [Concomitant]
     Active Substance: CETIRIZINE HYDROCHLORIDE
  3. VELCADE [Suspect]
     Active Substance: BORTEZOMIB
     Indication: PLASMA CELL MYELOMA
     Dosage: C1 D1, C1 D4
     Route: 058
     Dates: start: 20150323, end: 20150627
  4. MILURIT [Concomitant]
     Active Substance: ALLOPURINOL
  5. MARCAINE (BUPIVACAINE HCL) [Concomitant]
  6. URSOSAN [Concomitant]
  7. NORMAL SALINE SOLUTION [Concomitant]
  8. ZOMETA [Concomitant]
     Active Substance: ZOLEDRONIC ACID
  9. NOVALGIN [Concomitant]
     Active Substance: METAMIZOLE SODIUM
     Route: 048
  10. ESSENTIALE FORTE [Concomitant]
  11. XALACOM [Concomitant]
     Active Substance: LATANOPROST\TIMOLOL MALEATE
     Dosage: GTT TOPICAL
     Route: 061
  12. AZOPT [Concomitant]
     Active Substance: BRINZOLAMIDE
     Dosage: GTT-TOPICAL
     Route: 061
  13. BERODUAL N [Concomitant]
     Active Substance: FENOTEROL HYDROBROMIDE\IPRATROPIUM BROMIDE
  14. BISEPTOL [Concomitant]
     Active Substance: SULFAMETHOXAZOLE\TRIMETHOPRIM
  15. FRAXIPARINE [Concomitant]
     Active Substance: NADROPARIN CALCIUM
     Route: 058
  16. DARATUMUMAB [Suspect]
     Active Substance: DARATUMUMAB
     Route: 042
  17. DARATUMUMAB [Suspect]
     Active Substance: DARATUMUMAB
     Indication: PLASMA CELL MYELOMA
     Dosage: C1 D1
     Route: 042
     Dates: start: 20150323, end: 20150623
  18. DEXAMETHASONE. [Suspect]
     Active Substance: DEXAMETHASONE
     Indication: PLASMA CELL MYELOMA
     Route: 048
     Dates: start: 20150323
  19. VALACYCLOVIR [Concomitant]
     Active Substance: VALACYCLOVIR HYDROCHLORIDE
  20. TRAMAL [Concomitant]
     Active Substance: TRAMADOL
     Dosage: 100

REACTIONS (2)
  - Gamma-glutamyltransferase increased [Recovered/Resolved]
  - Alanine aminotransferase increased [Recovered/Resolved]

NARRATIVE: CASE EVENT DATE: 20150630
